FAERS Safety Report 7526154-6 (Version None)
Quarter: 2011Q2

REPORT INFORMATION
  Report Type: 
  Country: None (occurrence: None)
  Receive Date: 20110527
  Receipt Date: 20110517
  Transmission Date: 20111010
  Serious: Yes (Other)
  Sender: FDA-Public Use
  Company Number: AE 2011-182

PATIENT
  Age: 34 Year
  Sex: Male

DRUGS (5)
  1. FENTANYL [Concomitant]
  2. PRIALT [Suspect]
     Indication: PAIN
     Dosage: 0.01-0.125 UG/HR INTRATHECAL
     Route: 037
     Dates: start: 20110125, end: 20110501
  3. PRIALT [Suspect]
     Indication: ARACHNOIDITIS
     Dosage: 0.01-0.125 UG/HR INTRATHECAL
     Route: 037
     Dates: start: 20110125, end: 20110501
  4. OXYCODONE HCL [Concomitant]
  5. OXYCONTIN [Concomitant]

REACTIONS (8)
  - DRY SKIN [None]
  - HEADACHE [None]
  - CHILLS [None]
  - BURNING SENSATION [None]
  - EUPHORIC MOOD [None]
  - FEELING COLD [None]
  - PAIN [None]
  - MENTAL IMPAIRMENT [None]
